FAERS Safety Report 6776354-8 (Version None)
Quarter: 2010Q2

REPORT INFORMATION
  Report Type: 
  Country: None (occurrence: None)
  Receive Date: 20100615
  Receipt Date: 20100601
  Transmission Date: 20101027
  Serious: Yes (Death, Other)
  Sender: FDA-Public Use
  Company Number: LEO-2010-00329

PATIENT
  Age: 70 Year
  Sex: Male

DRUGS (15)
  1. INNOHEP [Suspect]
     Indication: DRUG USE FOR UNKNOWN INDICATION
     Dosage: (4500 IU)
     Dates: start: 20100209, end: 20100212
  2. REFLUDAN [Suspect]
     Indication: DRUG USE FOR UNKNOWN INDICATION
  3. HEPARIN [Concomitant]
  4. ACETAMINOPHEN [Concomitant]
  5. CYCLIMORPH (MORPHINE TARTRATE, CYCLIZINE TARTRATE) [Concomitant]
  6. PROCHLORPERAZINE MALEATE [Concomitant]
  7. ATORVASTATIN CALCIUM [Concomitant]
  8. CITALOPRAM HYDROBROMIDE [Concomitant]
  9. QUETIAPINE [Concomitant]
  10. AMLODIPINE [Concomitant]
  11. LACTULOSE [Concomitant]
  12. ESOMEPRAZOLE MAGNESIUM [Concomitant]
  13. SALINE [Concomitant]
  14. CO-AMOXICLAV (AMOXICILLIN SODIUM, CLAVULANATE POTASSIUM) [Concomitant]
  15. DEXTROSE (GLUCOSE) (5 PERCENT) [Concomitant]

REACTIONS (2)
  - HEPARIN-INDUCED THROMBOCYTOPENIA [None]
  - SUBDURAL HAEMORRHAGE [None]
